FAERS Safety Report 6748729-4 (Version None)
Quarter: 2010Q2

REPORT INFORMATION
  Report Type: 
  Country: None (occurrence: None)
  Receive Date: 20100601
  Receipt Date: 20100518
  Transmission Date: 20101027
  Serious: No
  Sender: FDA-Public Use
  Company Number: PHHY2010US31664

PATIENT
  Sex: Male
  Weight: 66.6 kg

DRUGS (7)
  1. EXJADE [Suspect]
     Indication: THALASSAEMIA ALPHA
     Dosage: 2500 MG, QD
     Route: 048
     Dates: start: 20091005
  2. EXJADE [Suspect]
     Indication: HAEMOGLOBIN E DISEASE
     Dosage: 2500 MG, QD
     Route: 048
     Dates: end: 20100511
  3. EXJADE [Suspect]
     Indication: IRON OVERLOAD
  4. PRINIVIL [Suspect]
     Indication: CARDIAC FAILURE CONGESTIVE
     Dosage: 25 MG, QD
     Route: 048
     Dates: start: 20100329
  5. DESFERAL [Concomitant]
     Indication: IRON OVERLOAD
     Dosage: 3 G, QHS
     Route: 058
     Dates: start: 20091111
  6. ANDROGEL [Concomitant]
     Indication: HYPOGONADISM
     Dosage: 7.5 MG, QD
     Route: 062
  7. VITAMIN D [Concomitant]
     Dosage: 1 DF, QW
     Route: 048

REACTIONS (18)
  - ASTHENIA [None]
  - BLOOD ALBUMIN INCREASED [None]
  - BLOOD BILIRUBIN INCREASED [None]
  - BLOOD CREATININE INCREASED [None]
  - BLOOD GLUCOSE INCREASED [None]
  - BLOOD POTASSIUM DECREASED [None]
  - BLOOD UREA INCREASED [None]
  - CHEST DISCOMFORT [None]
  - FATIGUE [None]
  - GLUCOSE URINE PRESENT [None]
  - HAEMATURIA [None]
  - MEAN CELL HAEMOGLOBIN DECREASED [None]
  - MEAN CELL VOLUME DECREASED [None]
  - PROTEIN TOTAL INCREASED [None]
  - PROTEINURIA [None]
  - RED BLOOD CELL COUNT INCREASED [None]
  - RED CELL DISTRIBUTION WIDTH INCREASED [None]
  - WHITE BLOOD CELL COUNT INCREASED [None]
